FAERS Safety Report 11910649 (Version 1)
Quarter: 2016Q1

REPORT INFORMATION
  Report Type: Spontaneous
  Country: CA (occurrence: CA)
  Receive Date: 20160112
  Receipt Date: 20160112
  Transmission Date: 20160526
  Serious: Yes (Hospitalization)
  Sender: FDA-Public Use
  Company Number: CA-TEVA-624735ACC

PATIENT
  Age: 75 Year
  Sex: Female
  Weight: 86 kg

DRUGS (6)
  1. CRESTOR - 10MG [Concomitant]
  2. SALBUTAMOL [Concomitant]
     Active Substance: ALBUTEROL
  3. ADVAIR HFA [Concomitant]
     Active Substance: FLUTICASONE PROPIONATE\SALMETEROL XINAFOATE
  4. PMS-RAMIPRIL-HCTZ [Concomitant]
  5. ALENDRONATE [Suspect]
     Active Substance: ALENDRONATE SODIUM
     Indication: OSTEOPOROSIS
     Route: 065
  6. IODOSORB [Concomitant]
     Active Substance: CADEXOMER IODINE

REACTIONS (2)
  - Stress fracture [Unknown]
  - Femur fracture [Unknown]
